FAERS Safety Report 4682174-0 (Version None)
Quarter: 2005Q2

REPORT INFORMATION
  Report Type: 
  Country: None (occurrence: None)
  Receive Date: 20050603
  Receipt Date: 20050603
  Transmission Date: 20051028
  Serious: No
  Sender: FDA-Public Use
  Company Number: None

PATIENT
  Sex: Male
  Weight: 95.45 kg

DRUGS (6)
  1. DOXORUBICIN HCL [Suspect]
     Indication: TRANSITIONAL CELL CARCINOMA
     Dosage: 50 MG/M2 IV ON DAY 1 X 4 CYCLES
     Route: 042
     Dates: start: 20050223
  2. GEMCITABINE [Suspect]
     Dosage: 2000 MG/M2 IV OVER 2 HOURS ON DAY 1 X 4 CYCLES
     Route: 042
  3. PEGFILGRASTIM [Suspect]
     Dosage: 6 MG SQ ON DAYS 2X4 CYCLES
     Route: 058
  4. PACLITAXEL [Suspect]
     Dosage: 150 MG/M2 IV OVER 3 HOURS ON DAY 1 X 4 CYCLES
     Route: 042
  5. CISPLATIN [Suspect]
     Dosage: 60 MG/M2 IV OVER 30-60 MIN X 4 CYCLES
     Route: 042
  6. PEGFILGRASTIM [Suspect]
     Dosage: 6 MG SQ ON DAYS 2 X 4 CYCLES
     Route: 058

REACTIONS (7)
  - ASTHENIA [None]
  - DYSPNOEA EXERTIONAL [None]
  - DYSURIA [None]
  - HYPOKALAEMIA [None]
  - ORAL INTAKE REDUCED [None]
  - SEPTIC SHOCK [None]
  - STAPHYLOCOCCAL INFECTION [None]
